FAERS Safety Report 25017717 (Version 1)
Quarter: 2025Q1

REPORT INFORMATION
  Report Type: Spontaneous
  Country: RS (occurrence: RS)
  Receive Date: 20250227
  Receipt Date: 20250227
  Transmission Date: 20250409
  Serious: Yes (Other)
  Sender: TEVA
  Company Number: RS-TEVA-VS-3301641

PATIENT
  Age: 39 Year
  Sex: Male

DRUGS (1)
  1. PALIPERIDONE [Suspect]
     Active Substance: PALIPERIDONE
     Indication: Schizophrenia
     Route: 030
     Dates: start: 2017, end: 2025

REACTIONS (3)
  - Hepatomegaly [Unknown]
  - Alanine aminotransferase increased [Unknown]
  - Aspartate aminotransferase increased [Unknown]

NARRATIVE: CASE EVENT DATE: 20250101
